FAERS Safety Report 19251086 (Version 2)
Quarter: 2021Q2

REPORT INFORMATION
  Report Type: Spontaneous
  Country: PE (occurrence: PE)
  Receive Date: 20210512
  Receipt Date: 20210526
  Transmission Date: 20210717
  Serious: Yes (Hospitalization, Other)
  Sender: FDA-Public Use
  Company Number: PE-LUPIN PHARMACEUTICALS INC.-2021-06891

PATIENT
  Age: 77 Year
  Sex: Male

DRUGS (4)
  1. CEFTRIAXONE. [Suspect]
     Active Substance: CEFTRIAXONE
     Indication: ANTIBIOTIC THERAPY
     Dosage: UNK, THE DAYS OF ANTIBACTERIAL THERAPY WAS REPORTED AS 21 DAYS
     Route: 065
     Dates: start: 2019
  2. PIPERACILLIN/TAZOBACTAM [Suspect]
     Active Substance: PIPERACILLIN SODIUM\TAZOBACTAM SODIUM
     Indication: ANTIBIOTIC THERAPY
     Dosage: UNK, THE DAYS OF ANTIBACTERIAL THERAPY WAS REPORTED AS 21 DAYS
     Route: 065
     Dates: start: 2019
  3. MEROPENEM. [Suspect]
     Active Substance: MEROPENEM
     Indication: ANTIBIOTIC THERAPY
     Dosage: UNK, THE DAYS OF ANTIBACTERIAL THERAPY WAS REPORTED AS 21 DAYS
     Route: 065
     Dates: start: 2019
  4. COLISTIN [Suspect]
     Active Substance: COLISTIN
     Indication: ANTIBIOTIC THERAPY
     Dosage: UNK, THE DAYS OF ANTIBACTERIAL THERAPY WAS REPORTED AS 21 DAYS
     Route: 065
     Dates: start: 2019

REACTIONS (2)
  - Nosocomial infection [Unknown]
  - Clostridium difficile colitis [Unknown]

NARRATIVE: CASE EVENT DATE: 2019
